FAERS Safety Report 13240119 (Version 2)
Quarter: 2017Q1

REPORT INFORMATION
  Report Type: Spontaneous
  Country: JP (occurrence: JP)
  Receive Date: 20170216
  Receipt Date: 20170221
  Transmission Date: 20170428
  Serious: Yes (Other)
  Sender: FDA-Public Use
  Company Number: JP-GLAXOSMITHKLINE-JP2017GSK021972

PATIENT
  Age: 59 Year
  Sex: Female

DRUGS (6)
  1. LOXOPROFEN [Concomitant]
     Active Substance: LOXOPROFEN
  2. RITUXIMAB [Concomitant]
     Active Substance: RITUXIMAB
  3. SALAZOSULFAPYRIDINE [Concomitant]
     Active Substance: SULFASALAZINE
  4. BELIMUMAB [Suspect]
     Active Substance: BELIMUMAB
  5. METHOTREXATE. [Suspect]
     Active Substance: METHOTREXATE
     Indication: ARTHRALGIA
  6. SODIUM AUROTHIOMALATE [Concomitant]
     Active Substance: GOLD SODIUM THIOMALATE

REACTIONS (6)
  - Myasthenia gravis [Unknown]
  - Pneumonia [Unknown]
  - Neuromyelitis optica spectrum disorder [Unknown]
  - Eyelid ptosis [Unknown]
  - Immune thrombocytopenic purpura [Unknown]
  - Hypoaesthesia [Unknown]
